FAERS Safety Report 9469813 (Version 1)
Quarter: 2013Q3

REPORT INFORMATION
  Report Type: Spontaneous
  Country: US (occurrence: US)
  Receive Date: 20130822
  Receipt Date: 20130822
  Transmission Date: 20140515
  Serious: Yes (Hospitalization)
  Sender: FDA-Public Use
  Company Number: US-JNJFOC-20130807903

PATIENT
  Age: 59 Year
  Sex: Female
  Weight: 51.26 kg

DRUGS (3)
  1. DURAGESIC [Suspect]
     Indication: PAIN
     Dosage: 7 YEARS AGO
     Route: 062
  2. DURAGESIC [Suspect]
     Indication: PAIN
     Route: 062
     Dates: start: 2000
  3. DURAGESIC [Suspect]
     Indication: PAIN
     Route: 062
     Dates: start: 2009

REACTIONS (8)
  - Cat scratch disease [Recovered/Resolved]
  - Condition aggravated [Unknown]
  - Muscle spasms [Unknown]
  - Drug ineffective [Unknown]
  - Joint injury [Unknown]
  - Weight decreased [Not Recovered/Not Resolved]
  - Adverse event [Unknown]
  - Drug administration error [Unknown]
